FAERS Safety Report 4876316-1 (Version None)
Quarter: 2006Q1

REPORT INFORMATION
  Report Type: 
  Country: None (occurrence: None)
  Receive Date: 20060106
  Receipt Date: 20051228
  Transmission Date: 20060701
  Serious: Yes (Hospitalization)
  Sender: FDA-Public Use
  Company Number: 2005BI019054

PATIENT
  Age: 63 Year
  Sex: Female

DRUGS (14)
  1. AVONEX [Suspect]
     Indication: MULTIPLE SCLEROSIS
     Dosage: 30 UG;QW;IM
     Route: 030
     Dates: start: 19970409, end: 20030909
  2. AVONEX [Suspect]
     Indication: MULTIPLE SCLEROSIS
     Dosage: 30 UG;QW;IM
     Route: 030
     Dates: start: 20030916
  3. METHOTREXATE [Concomitant]
  4. KLONOPIN [Concomitant]
  5. GLUCOPHAGE [Concomitant]
  6. GLIPIZIDE [Concomitant]
  7. FOLIC ACID [Concomitant]
  8. ASPIRIN [Concomitant]
  9. DITROPAN [Concomitant]
  10. NEXIUM [Concomitant]
  11. TYLENOL W/ CODEINE NO. 3 [Concomitant]
  12. WELLBUTRIN [Concomitant]
  13. FLEXERIL [Concomitant]
  14. ENALAPRIL [Concomitant]

REACTIONS (1)
  - INTERVERTEBRAL DISC PROTRUSION [None]
